FAERS Safety Report 9187866 (Version 1)
Quarter: 2013Q1

REPORT INFORMATION
  Report Type: Spontaneous
  Country: GH (occurrence: GH)
  Receive Date: 20130325
  Receipt Date: 20130325
  Transmission Date: 20140127
  Serious: Yes (Other)
  Sender: FDA-Public Use
  Company Number: GH-ROCHE-1206334

PATIENT
  Sex: Male

DRUGS (3)
  1. PEGASYS [Suspect]
     Indication: HEPATITIS B
     Route: 058
  2. PEGASYS [Suspect]
     Dosage: 8 WEEKS
     Route: 058
  3. PEGASYS [Suspect]
     Dosage: 6 WEEKS
     Route: 058

REACTIONS (2)
  - Neutropenia [Unknown]
  - Viral load increased [Unknown]
